FAERS Safety Report 12233328 (Version 2)
Quarter: 2016Q2

REPORT INFORMATION
  Report Type: Report from Study
  Country: US (occurrence: US)
  Receive Date: 20160404
  Receipt Date: 20160411
  Transmission Date: 20160815
  Serious: Yes (Other)
  Sender: FDA-Public Use
  Company Number: US-ROCHE-1735371

PATIENT
  Age: 70 Year
  Sex: Female
  Weight: 81.72 kg

DRUGS (2)
  1. LEVOTHYROXINE. [Concomitant]
     Active Substance: LEVOTHYROXINE
     Indication: HYPOTHYROIDISM
     Dosage: YES
     Route: 048
     Dates: start: 1991
  2. LUCENTIS [Suspect]
     Active Substance: RANIBIZUMAB
     Indication: NEOVASCULAR AGE-RELATED MACULAR DEGENERATION
     Dosage: RIGHT EYE SINCE 2009, BOTH SINCE 2011
     Route: 050
     Dates: start: 2009

REACTIONS (9)
  - Angle closure glaucoma [Unknown]
  - Eye infection [Recovered/Resolved]
  - Toothache [Recovered/Resolved]
  - Lacrimation increased [Recovered/Resolved]
  - Sinus headache [Recovered/Resolved]
  - Atrial fibrillation [Recovered/Resolved]
  - Blindness unilateral [Not Recovered/Not Resolved]
  - Rhinalgia [Recovered/Resolved]
  - Eye pain [Recovered/Resolved]

NARRATIVE: CASE EVENT DATE: 201010
